FAERS Safety Report 17029627 (Version 2)
Quarter: 2019Q4

REPORT INFORMATION
  Report Type: Report from Study
  Country: US (occurrence: US)
  Receive Date: 20191114
  Receipt Date: 20191126
  Transmission Date: 20200122
  Serious: No
  Sender: FDA-Public Use
  Company Number: US-AMGEN-USASL2019178545

PATIENT
  Age: 68 Year
  Sex: Male

DRUGS (1)
  1. REPATHA [Suspect]
     Active Substance: EVOLOCUMAB
     Indication: HYPERCHOLESTEROLAEMIA
     Dosage: 140 MILLIGRAM, Q2WK
     Route: 065
     Dates: start: 20190726

REACTIONS (13)
  - Nausea [Unknown]
  - Aphonia [Recovered/Resolved]
  - Increased appetite [Recovered/Resolved]
  - Peripheral swelling [Unknown]
  - Thirst [Unknown]
  - Muscle spasms [Unknown]
  - Visual impairment [Unknown]
  - Headache [Unknown]
  - Feeling abnormal [Unknown]
  - Memory impairment [Unknown]
  - Dysphonia [Unknown]
  - Tinnitus [Unknown]
  - Somnolence [Unknown]

NARRATIVE: CASE EVENT DATE: 2019
